FAERS Safety Report 5321602-4 (Version None)
Quarter: 2007Q2

REPORT INFORMATION
  Report Type: 
  Country: None (occurrence: None)
  Receive Date: 20070510
  Receipt Date: 20070430
  Transmission Date: 20071010
  Serious: Yes (Other)
  Sender: FDA-Public Use
  Company Number: US-ROCHE-493029

PATIENT
  Age: 61 Year
  Sex: Female
  Weight: 47.1 kg

DRUGS (1)
  1. BONIVA [Suspect]
     Indication: OSTEOPOROSIS POSTMENOPAUSAL
     Dosage: STRENGTH REPORTED AS 3MG/3ML
     Route: 042
     Dates: start: 20070413

REACTIONS (2)
  - CELLULITIS [None]
  - EXTRAVASATION [None]
